FAERS Safety Report 9869993 (Version 3)
Quarter: 2014Q2

REPORT INFORMATION
  Report Type: Spontaneous
  Country: US (occurrence: US)
  Receive Date: 20140205
  Receipt Date: 20140414
  Transmission Date: 20141212
  Serious: Yes (Other)
  Sender: FDA-Public Use
  Company Number: US-GLAXOSMITHKLINE-A1016885A

PATIENT
  Age: 54 Year
  Sex: Male

DRUGS (1)
  1. VALTREX [Suspect]
     Indication: HERPES OPHTHALMIC
     Dosage: 500MG UNKNOWN
     Route: 065
     Dates: start: 20090226

REACTIONS (4)
  - Pain [Not Recovered/Not Resolved]
  - Eye operation [Unknown]
  - Glaucoma [Unknown]
  - Malaise [Unknown]
